FAERS Safety Report 16447139 (Version 1)
Quarter: 2019Q2

REPORT INFORMATION
  Report Type: Report from Study
  Country: US (occurrence: US)
  Receive Date: 20190618
  Receipt Date: 20190618
  Transmission Date: 20190711
  Serious: Yes (Other)
  Sender: FDA-Public Use
  Company Number: PHEH2019US025463

PATIENT
  Sex: Female

DRUGS (1)
  1. COSENTYX [Suspect]
     Active Substance: SECUKINUMAB
     Indication: PSORIASIS
     Route: 058
     Dates: start: 20180613

REACTIONS (4)
  - Upper respiratory tract infection [Unknown]
  - Seasonal allergy [Unknown]
  - Asthma [Unknown]
  - Pneumonia [Unknown]

NARRATIVE: CASE EVENT DATE: 20190101
